FAERS Safety Report 16844312 (Version 1)
Quarter: 2019Q3

REPORT INFORMATION
  Report Type: Spontaneous
  Country: US (occurrence: US)
  Receive Date: 20190924
  Receipt Date: 20190924
  Transmission Date: 20191005
  Serious: No
  Sender: FDA-Public Use
  Company Number: US-ALLERGAN-1921057US

PATIENT
  Age: 49 Year
  Sex: Female

DRUGS (4)
  1. MELATONIN [Concomitant]
     Active Substance: MELATONIN
     Indication: PRODUCT USED FOR UNKNOWN INDICATION
     Dosage: UNK
     Route: 048
  2. ZOLOFT [Concomitant]
     Active Substance: SERTRALINE HYDROCHLORIDE
     Indication: PRODUCT USED FOR UNKNOWN INDICATION
     Dosage: 25 MG
     Route: 048
  3. SAPHRIS [Suspect]
     Active Substance: ASENAPINE MALEATE
     Dosage: 10 MG, QD
     Route: 048
     Dates: start: 201904, end: 20190523
  4. SAPHRIS [Suspect]
     Active Substance: ASENAPINE MALEATE
     Indication: PARANOIA
     Dosage: 10 MG, QD
     Route: 048

REACTIONS (6)
  - Gastrointestinal inflammation [Recovered/Resolved]
  - Product lot number issue [Unknown]
  - Liver disorder [Not Recovered/Not Resolved]
  - Thinking abnormal [Not Recovered/Not Resolved]
  - Weight increased [Not Recovered/Not Resolved]
  - Product quality issue [Unknown]

NARRATIVE: CASE EVENT DATE: 201904
